FAERS Safety Report 7394204-6 (Version None)
Quarter: 2011Q2

REPORT INFORMATION
  Report Type: 
  Country: None (occurrence: None)
  Receive Date: 20110405
  Receipt Date: 20110323
  Transmission Date: 20111010
  Serious: Yes (Hospitalization)
  Sender: FDA-Public Use
  Company Number: KR-ELI_LILLY_AND_COMPANY-KR201103007471

PATIENT
  Age: 36 Year
  Sex: Female
  Weight: 46 kg

DRUGS (3)
  1. HUMALOG MIX 50/50 [Suspect]
     Dosage: 22 U, EACH EVENING
     Route: 058
     Dates: start: 20110216, end: 20110312
  2. HUMALOG MIX 50/50 [Suspect]
     Indication: TYPE 2 DIABETES MELLITUS
     Dosage: 20 U, EACH MORNING
     Route: 058
     Dates: start: 20110216, end: 20110312
  3. HUMALOG MIX 50/50 [Suspect]
     Dosage: 22 U, OTHER
     Route: 058
     Dates: start: 20110216, end: 20110312

REACTIONS (1)
  - BLOOD GLUCOSE INCREASED [None]
